FAERS Safety Report 19932556 (Version 1)
Quarter: 2021Q4

REPORT INFORMATION
  Report Type: Spontaneous
  Country: US (occurrence: US)
  Receive Date: 20211008
  Receipt Date: 20211008
  Transmission Date: 20220303
  Serious: No
  Sender: FDA-Public Use
  Company Number: US-PFIZER INC-2021541260

PATIENT
  Age: 60 Year

DRUGS (1)
  1. ENBREL [Suspect]
     Active Substance: ETANERCEPT
     Indication: Arthralgia
     Dosage: UNK
     Route: 065
     Dates: start: 201408, end: 201710

REACTIONS (1)
  - Drug ineffective [Unknown]
